FAERS Safety Report 23153457 (Version 1)
Quarter: 2023Q4

REPORT INFORMATION
  Report Type: Report from Study
  Country: CO (occurrence: CO)
  Receive Date: 20231107
  Receipt Date: 20231107
  Transmission Date: 20240110
  Serious: Yes (Hospitalization)
  Sender: FDA-Public Use
  Company Number: CO-ASTELLAS-2023US032952

PATIENT
  Age: 26 Year
  Sex: Female
  Weight: 57 kg

DRUGS (1)
  1. TACROLIMUS [Suspect]
     Active Substance: TACROLIMUS
     Indication: Renal transplant
     Dosage: 6 MG, ONCE DAILY (1 CAPSULE OF 1 MG AND 1 CAPSULE OF 5 MG)
     Route: 048
     Dates: start: 20190828

REACTIONS (2)
  - Gastrointestinal inflammation [Unknown]
  - Gastroenteritis [Unknown]
